FAERS Safety Report 4697344-5 (Version None)
Quarter: 2005Q2

REPORT INFORMATION
  Report Type: 
  Country: None (occurrence: None)
  Receive Date: 20050620
  Receipt Date: 20050602
  Transmission Date: 20051028
  Serious: Yes (Other)
  Sender: FDA-Public Use
  Company Number: DSA_26608_2005

PATIENT
  Age: 61 Year
  Sex: Male

DRUGS (11)
  1. CARDIZEM [Suspect]
     Indication: MYOCARDIAL ISCHAEMIA
     Dosage: 90 MG Q DAY PO
     Route: 048
     Dates: start: 19920101
  2. AMIODARONE HYDROCHLORIDE [Suspect]
     Indication: CARDIAC FAILURE CONGESTIVE
     Dosage: 400 MG Q DAY PO
     Route: 048
     Dates: start: 19940427, end: 19940608
  3. IMDUR [Suspect]
     Indication: MYOCARDIAL ISCHAEMIA
     Dosage: 60 MG Q DAY PO
     Route: 048
     Dates: start: 19920101
  4. CAPOTEN [Suspect]
     Indication: MYOCARDIAL ISCHAEMIA
     Dosage: 37 MG Q DAY PO
     Route: 048
     Dates: start: 19920101
  5. UREX [Suspect]
     Indication: MYOCARDIAL ISCHAEMIA
     Dosage: 80 MG Q DAY PO
     Route: 048
     Dates: start: 19920101
  6. SLOW-K [Suspect]
     Indication: MYOCARDIAL ISCHAEMIA
     Dosage: 1.2 G Q DAY PO
     Route: 048
     Dates: start: 19920101
  7. ADALAT [Suspect]
     Indication: MYOCARDIAL ISCHAEMIA
     Dosage: 40 MG Q DAY PO
     Route: 048
     Dates: start: 19920101
  8. ZANTAC [Suspect]
     Indication: MYOCARDIAL ISCHAEMIA
     Dosage: 300 MG Q DAY PO
     Route: 048
     Dates: start: 19920101
  9. ANGININE [Suspect]
     Indication: MYOCARDIAL ISCHAEMIA
     Dosage: DF PRN PO
     Route: 048
  10. VENTOLIN [Suspect]
     Indication: EMPHYSEMA
     Dosage: 12 DF Q DAY IH
     Route: 055
     Dates: start: 19920101
  11. CARTIA               /AUS/ [Suspect]
     Indication: MYOCARDIAL ISCHAEMIA
     Dosage: 100 MG Q DAY PO
     Route: 048
     Dates: start: 19920101

REACTIONS (1)
  - CRYPTOGENIC ORGANIZING PNEUMONIA [None]
